FAERS Safety Report 19762694 (Version 1)
Quarter: 2021Q3

REPORT INFORMATION
  Report Type: Spontaneous
  Country: CN (occurrence: CN)
  Receive Date: 20210827
  Receipt Date: 20210827
  Transmission Date: 20211014
  Serious: Yes (Other)
  Sender: FDA-Public Use
  Company Number: CN-BAXTER-2021BAX026553

PATIENT
  Age: 66 Year
  Sex: Male
  Weight: 65 kg

DRUGS (2)
  1. ENDOXAN [Suspect]
     Active Substance: CYCLOPHOSPHAMIDE
     Indication: GLOMERULONEPHRITIS MEMBRANOUS
     Dosage: 0.4G CYCLOPHOSPHAMIDE + 500 ML SODIUM CHLORIDE
     Route: 041
     Dates: start: 20210804, end: 20210804
  2. 0.9% SODIUM CHLORIDE INJECTION [Suspect]
     Active Substance: SODIUM CHLORIDE
     Indication: MEDICATION DILUTION
     Dosage: 0.4G CYCLOPHOSPHAMIDE + 500ML SODIUM CHLORIDE
     Route: 041
     Dates: start: 20210804, end: 20210804

REACTIONS (4)
  - Laryngeal oedema [Recovering/Resolving]
  - Oropharyngeal pain [Unknown]
  - Dysphagia [Recovering/Resolving]
  - Swelling [Unknown]

NARRATIVE: CASE EVENT DATE: 20210804
